FAERS Safety Report 7212565-5 (Version None)
Quarter: 2010Q4

REPORT INFORMATION
  Report Type: 
  Country: None (occurrence: None)
  Receive Date: 20101229
  Receipt Date: 20101214
  Transmission Date: 20110411
  Serious: Yes (Death)
  Sender: FDA-Public Use
  Company Number: 012290

PATIENT
  Age: 68 Year

DRUGS (2)
  1. BUSULFEX [Suspect]
     Indication: CHEMOTHERAPY
  2. HYDROXYUREA [Concomitant]

REACTIONS (1)
  - ACUTE MYELOID LEUKAEMIA [None]
